FAERS Safety Report 5240134-5 (Version None)
Quarter: 2007Q1

REPORT INFORMATION
  Report Type: 
  Country: None (occurrence: None)
  Receive Date: 20070216
  Receipt Date: 20070207
  Transmission Date: 20070707
  Serious: Yes (Other)
  Sender: FDA-Public Use
  Company Number: IE-PFIZER INC-2007011023

PATIENT
  Age: 75 Year
  Sex: Male

DRUGS (4)
  1. LYRICA [Suspect]
     Indication: PAIN IN EXTREMITY
     Route: 048
  2. ANTIDEPRESSANTS [Concomitant]
  3. CARDIAC THERAPY [Concomitant]
  4. TRICYCLIC ANTIDEPRESSANTS [Concomitant]

REACTIONS (6)
  - ASTHENIA [None]
  - BRAIN NEOPLASM [None]
  - DRUG INEFFECTIVE [None]
  - HALLUCINATION [None]
  - METASTASES TO CENTRAL NERVOUS SYSTEM [None]
  - SEPSIS [None]
